FAERS Safety Report 5152978-9 (Version None)
Quarter: 2006Q4

REPORT INFORMATION
  Report Type: 
  Country: None (occurrence: None)
  Receive Date: 20061110
  Receipt Date: 20061110
  Transmission Date: 20070319
  Serious: No
  Sender: FDA-Public Use
  Company Number: None

PATIENT
  Age: 61 Year
  Sex: Male
  Weight: 113.4 kg

DRUGS (2)
  1. METOPROLOL   50MG  SA [Suspect]
     Indication: CORONARY ARTERY DISEASE
     Dosage: 50MG  QD  PO   (DURATION: SEVERAL YEARS)
     Route: 048
  2. METOPROLOL   50MG  SA [Suspect]
     Indication: HYPERTENSION
     Dosage: 50MG  QD  PO   (DURATION: SEVERAL YEARS)
     Route: 048

REACTIONS (16)
  - ALCOHOL USE [None]
  - APHASIA [None]
  - ATRIAL FIBRILLATION [None]
  - BRADYCARDIA [None]
  - CIRRHOSIS ALCOHOLIC [None]
  - CONFUSIONAL STATE [None]
  - DEPRESSION [None]
  - DIABETES MELLITUS NON-INSULIN-DEPENDENT [None]
  - DISORIENTATION [None]
  - DISTURBANCE IN ATTENTION [None]
  - EJECTION FRACTION DECREASED [None]
  - LOSS OF CONSCIOUSNESS [None]
  - MENTAL STATUS CHANGES [None]
  - POST-TRAUMATIC STRESS DISORDER [None]
  - RENAL FAILURE CHRONIC [None]
  - THERAPEUTIC AGENT TOXICITY [None]
